FAERS Safety Report 13870206 (Version 1)
Quarter: 2017Q3

REPORT INFORMATION
  Report Type: Spontaneous
  Country: US (occurrence: None)
  Receive Date: 20170814
  Receipt Date: 20170814
  Transmission Date: 20171127
  Serious: Yes (Hospitalization)
  Sender: FDA-Public Use
  Company Number: None

PATIENT
  Age: 69 Year
  Sex: Male
  Weight: 94.3 kg

DRUGS (1)
  1. PAZOPANIB (GW786034) [Suspect]
     Active Substance: PAZOPANIB
     Dates: end: 20170714

REACTIONS (2)
  - Pneumothorax [None]
  - Pleural effusion [None]

NARRATIVE: CASE EVENT DATE: 20170715
